FAERS Safety Report 10261751 (Version 2)
Quarter: 2014Q3

REPORT INFORMATION
  Report Type: Spontaneous
  Country: FR (occurrence: FR)
  Receive Date: 20140626
  Receipt Date: 20140922
  Transmission Date: 20150326
  Serious: Yes (Hospitalization, Other)
  Sender: FDA-Public Use
  Company Number: FR-JNJFOC-20140608774

PATIENT
  Age: 86 Year
  Sex: Female

DRUGS (12)
  1. DUROGESIC [Suspect]
     Active Substance: FENTANYL
     Indication: PAIN
     Route: 062
     Dates: start: 20140420
  2. PERINDOPRIL [Concomitant]
     Active Substance: PERINDOPRIL
     Indication: PRODUCT USED FOR UNKNOWN INDICATION
     Route: 065
  3. ORAMORPH SR SUSTAINED RELEASE [Interacting]
     Active Substance: MORPHINE SULFATE
     Indication: PAIN
     Route: 048
     Dates: start: 20140417
  4. DAFALGAN [Concomitant]
     Active Substance: ACETAMINOPHEN
     Route: 065
     Dates: start: 201208
  5. SERESTA [Interacting]
     Active Substance: OXAZEPAM
     Indication: PRODUCT USED FOR UNKNOWN INDICATION
     Route: 048
     Dates: start: 201208, end: 20140502
  6. UVEDOSE [Concomitant]
     Active Substance: CHOLECALCIFEROL
     Indication: PRODUCT USED FOR UNKNOWN INDICATION
     Route: 065
     Dates: start: 201208
  7. DUROGESIC [Suspect]
     Active Substance: FENTANYL
     Indication: PAIN
     Route: 062
     Dates: start: 201403, end: 20140419
  8. VOGALENE [Concomitant]
     Active Substance: METOPIMAZINE
     Indication: PRODUCT USED FOR UNKNOWN INDICATION
     Route: 065
  9. LYRICA [Interacting]
     Active Substance: PREGABALIN
     Indication: OSTEOPOROSIS
     Route: 065
     Dates: start: 201403, end: 20140502
  10. PAROXETINE [Interacting]
     Active Substance: PAROXETINE\PAROXETINE HYDROCHLORIDE
     Indication: PRODUCT USED FOR UNKNOWN INDICATION
     Route: 065
     Dates: end: 20140419
  11. ACTISKENAN [Interacting]
     Active Substance: MORPHINE SULFATE
     Indication: PRODUCT USED FOR UNKNOWN INDICATION
     Route: 048
     Dates: start: 2012, end: 20140502
  12. PASSIFLORA INCARNATA [Concomitant]
     Active Substance: PASSIFLORA INCARNATA FLOWERING TOP
     Indication: PRODUCT USED FOR UNKNOWN INDICATION
     Route: 065

REACTIONS (12)
  - Respiratory acidosis [Unknown]
  - Disorientation [Recovered/Resolved]
  - Hypercapnia [Unknown]
  - Somnolence [Recovered/Resolved]
  - Asthenia [Recovered/Resolved]
  - Fall [Unknown]
  - Chest injury [Unknown]
  - Hypoventilation [Recovered/Resolved]
  - Drug interaction [Unknown]
  - Constipation [Recovered/Resolved]
  - Hypoxia [Unknown]
  - Disturbance in attention [Unknown]

NARRATIVE: CASE EVENT DATE: 2014
